FAERS Safety Report 6993191-X (Version None)
Quarter: 2010Q3

REPORT INFORMATION
  Report Type: 
  Country: None (occurrence: None)
  Receive Date: 20100917
  Receipt Date: 20100629
  Transmission Date: 20110219
  Serious: Yes (Hospitalization)
  Sender: FDA-Public Use
  Company Number: US-ASTRAZENECA-2008UW10019

PATIENT
  Age: 401 Month
  Sex: Male
  Weight: 108.9 kg

DRUGS (18)
  1. SEROQUEL [Suspect]
     Indication: DEPRESSION
     Route: 048
     Dates: start: 20030101, end: 20070701
  2. SEROQUEL [Suspect]
     Indication: ANXIETY
     Route: 048
     Dates: start: 20030101, end: 20070701
  3. SEROQUEL [Suspect]
     Route: 048
     Dates: start: 20030722
  4. SEROQUEL [Suspect]
     Route: 048
     Dates: start: 20030722
  5. SEROQUEL [Suspect]
     Route: 048
     Dates: start: 20050523
  6. SEROQUEL [Suspect]
     Route: 048
     Dates: start: 20050523
  7. SEROQUEL [Suspect]
     Route: 048
     Dates: start: 20050820, end: 20050919
  8. SEROQUEL [Suspect]
     Route: 048
     Dates: start: 20050820, end: 20050919
  9. SEROQUEL [Suspect]
     Route: 048
     Dates: start: 20060516
  10. SEROQUEL [Suspect]
     Route: 048
     Dates: start: 20060516
  11. SEROQUEL [Suspect]
     Route: 048
     Dates: start: 20070709
  12. SEROQUEL [Suspect]
     Route: 048
     Dates: start: 20070709
  13. EFFEXOR [Concomitant]
     Dates: start: 20040101
  14. HYDROCODONE [Concomitant]
     Dates: start: 20050820
  15. ATIVAN [Concomitant]
     Indication: ANXIETY
  16. ATIVAN [Concomitant]
     Indication: INSOMNIA
  17. TOPROL-XL [Concomitant]
  18. ALTACE [Concomitant]
     Route: 048
     Dates: start: 20070709

REACTIONS (9)
  - CELLULITIS [None]
  - CHEST PAIN [None]
  - DIABETES MELLITUS INADEQUATE CONTROL [None]
  - GASTROENTERITIS [None]
  - HYPERSENSITIVITY [None]
  - MUSCULOSKELETAL CHEST PAIN [None]
  - NAUSEA [None]
  - TYPE 2 DIABETES MELLITUS [None]
  - VOMITING [None]
